FAERS Safety Report 5632955-1 (Version None)
Quarter: 2008Q1

REPORT INFORMATION
  Report Type: 
  Country: None (occurrence: None)
  Receive Date: 20080214
  Receipt Date: 20080201
  Transmission Date: 20080703
  Serious: Yes (Hospitalization)
  Sender: FDA-Public Use
  Company Number: S08-FRA-00251-01

PATIENT
  Age: 75 Year
  Sex: Female

DRUGS (8)
  1. MEMANTINE HCL [Suspect]
     Dosage: 15 MG,QD,PO
     Route: 048
     Dates: start: 20070501, end: 20070801
  2. MEMANTINE HCL [Suspect]
     Dosage: 15 MG,QD,PO
     Route: 048
     Dates: start: 20070801, end: 20071014
  3. DEPAMIDE (VALPROMIDE) [Concomitant]
  4. LESCOL [Concomitant]
  5. STRESAM (ETIFOXINE) [Concomitant]
  6. ARTOTEC [Concomitant]
  7. ART (DIACEREIN) [Concomitant]
  8. OMEPRAZOLE [Concomitant]

REACTIONS (2)
  - ESCHERICHIA URINARY TRACT INFECTION [None]
  - GRAND MAL CONVULSION [None]
